FAERS Safety Report 6006533-9 (Version None)
Quarter: 2008Q4

REPORT INFORMATION
  Report Type: 
  Country: None (occurrence: None)
  Receive Date: 20081217
  Receipt Date: 20071205
  Transmission Date: 20090506
  Serious: No
  Sender: FDA-Public Use
  Company Number: US-AMGEN-KDL255480

PATIENT
  Sex: Female

DRUGS (2)
  1. ENBREL [Suspect]
     Indication: PSORIASIS
     Route: 058
     Dates: start: 20060601, end: 20071009
  2. BYETTA [Concomitant]

REACTIONS (5)
  - ABDOMINAL PAIN [None]
  - CELLULITIS [None]
  - DIARRHOEA [None]
  - HEPATIC ENZYME INCREASED [None]
  - PSORIASIS [None]
